FAERS Safety Report 12546834 (Version 1)
Quarter: 2016Q3

REPORT INFORMATION
  Report Type: Spontaneous
  Country: US (occurrence: US)
  Receive Date: 20160711
  Receipt Date: 20160711
  Transmission Date: 20161109
  Serious: No
  Sender: FDA-Public Use
  Company Number: US-BEH-2016070728

PATIENT
  Sex: Female
  Weight: 68.93 kg

DRUGS (21)
  1. PREDNISONE. [Concomitant]
     Active Substance: PREDNISONE
  2. IMITREX [Concomitant]
     Active Substance: SUMATRIPTAN SUCCINATE
  3. LEVOTHROID [Concomitant]
     Active Substance: LEVOTHYROXINE SODIUM
  4. XOPENEX [Concomitant]
     Active Substance: LEVALBUTEROL HYDROCHLORIDE
  5. LMX                                /00033401/ [Concomitant]
  6. ZOFRAN [Concomitant]
     Active Substance: ONDANSETRON HYDROCHLORIDE
  7. DIPHENHYDRAMINE. [Concomitant]
     Active Substance: DIPHENHYDRAMINE
  8. ATIVAN [Concomitant]
     Active Substance: LORAZEPAM
  9. DIFLUCAN [Concomitant]
     Active Substance: FLUCONAZOLE
  10. NORMAL SALINE [Concomitant]
     Active Substance: SODIUM CHLORIDE
  11. ESTRADIOL. [Concomitant]
     Active Substance: ESTRADIOL
  12. HUMALOG [Concomitant]
     Active Substance: INSULIN LISPRO
  13. GLUCAGON. [Concomitant]
     Active Substance: GLUCAGON
  14. ZEMAIRA [Suspect]
     Active Substance: .ALPHA.1-PROTEINASE INHIBITOR HUMAN
     Indication: ALPHA-1 ANTI-TRYPSIN DEFICIENCY
     Dosage: 45 MG/KG, AS DIRECTED
     Route: 042
  15. EPIPEN [Concomitant]
     Active Substance: EPINEPHRINE
  16. ASPIRIN. [Concomitant]
     Active Substance: ASPIRIN
  17. LANTUS [Concomitant]
     Active Substance: INSULIN GLARGINE
  18. ADVIL (MEFENAMIC ACID) [Concomitant]
     Active Substance: MEFENAMIC ACID
  19. ZEMAIRA [Suspect]
     Active Substance: .ALPHA.1-PROTEINASE INHIBITOR HUMAN
     Indication: TYPE 1 DIABETES MELLITUS
  20. SODIUM CHLORIDE. [Concomitant]
     Active Substance: SODIUM CHLORIDE
  21. TRAMADOL. [Concomitant]
     Active Substance: TRAMADOL

REACTIONS (1)
  - Influenza like illness [Unknown]
